FAERS Safety Report 7461116-9 (Version None)
Quarter: 2011Q2

REPORT INFORMATION
  Report Type: 
  Country: None (occurrence: None)
  Receive Date: 20110505
  Receipt Date: 20090318
  Transmission Date: 20111010
  Serious: Yes (Other)
  Sender: FDA-Public Use
  Company Number: DE-GENENTECH-318071

PATIENT
  Age: 87 Year
  Sex: Female

DRUGS (1)
  1. LUCENTIS [Suspect]
     Indication: AGE-RELATED MACULAR DEGENERATION
     Dosage: UNK
     Route: 031

REACTIONS (9)
  - VISION BLURRED [None]
  - OCULAR VASCULAR DISORDER [None]
  - VISUAL IMPAIRMENT [None]
  - BLINDNESS UNILATERAL [None]
  - SPEECH DISORDER [None]
  - INJECTION SITE PAIN [None]
  - INFLUENZA [None]
  - VISUAL ACUITY REDUCED [None]
  - RESTLESSNESS [None]
